FAERS Safety Report 12548202 (Version 2)
Quarter: 2017Q4

REPORT INFORMATION
  Report Type: Spontaneous
  Country: US (occurrence: US)
  Receive Date: 20160712
  Receipt Date: 20171212
  Transmission Date: 20180320
  Serious: No
  Sender: FDA-Public Use
  Company Number: US-PFIZER INC-2016329611

PATIENT
  Age: 77 Year
  Sex: Female

DRUGS (11)
  1. CELEBREX [Suspect]
     Active Substance: CELECOXIB
     Dosage: UNK
  2. BENICAR [Suspect]
     Active Substance: OLMESARTAN MEDOXOMIL
     Dosage: UNK
  3. BEXTRA [Suspect]
     Active Substance: VALDECOXIB
     Dosage: UNK
  4. HYDROCHLOROTHIAZIDE/LISINOPRIL [Suspect]
     Active Substance: HYDROCHLOROTHIAZIDE\LISINOPRIL
     Dosage: UNK
  5. NIASPAN ER [Suspect]
     Active Substance: NIACIN
     Dosage: UNK
  6. LOTREL [Suspect]
     Active Substance: AMLODIPINE BESYLATE\BENAZEPRIL HYDROCHLORIDE
     Dosage: UNK
  7. SEPTRA DS [Suspect]
     Active Substance: SULFAMETHOXAZOLE\TRIMETHOPRIM
     Dosage: UNK
  8. HYDROCHLOROTHIAZIDE. [Suspect]
     Active Substance: HYDROCHLOROTHIAZIDE
     Dosage: UNK
  9. OXYCODONE [Suspect]
     Active Substance: OXYCODONE
     Dosage: UNK
  10. KEFLEX [Suspect]
     Active Substance: CEPHALEXIN
     Dosage: UNK
  11. IODINE. [Suspect]
     Active Substance: IODINE
     Dosage: UNK

REACTIONS (2)
  - Drug hypersensitivity [Unknown]
  - Drug hypersensitivity [None]
